FAERS Safety Report 15153915 (Version 8)
Quarter: 2018Q4

REPORT INFORMATION
  Report Type: Spontaneous
  Country: US (occurrence: US)
  Receive Date: 20180717
  Receipt Date: 20181128
  Transmission Date: 20190204
  Serious: Yes (Other)
  Sender: FDA-Public Use
  Company Number: US-PFIZER INC-2017539056

PATIENT
  Age: 76 Year
  Sex: Female
  Weight: 43 kg

DRUGS (3)
  1. XELJANZ XR [Suspect]
     Active Substance: TOFACITINIB CITRATE
     Dosage: 11 MG, DAILY
     Route: 048
  2. ENBREL [Suspect]
     Active Substance: ETANERCEPT
     Indication: RHEUMATOID ARTHRITIS
     Dosage: 50 MG, WEEKLY
     Route: 030
     Dates: start: 201801
  3. ENBREL [Suspect]
     Active Substance: ETANERCEPT
     Dosage: 0.98 ML, WEEKLY (0.98 ML (50 INJECT I MILILITER MG/ML)
     Route: 058
     Dates: start: 20180122, end: 201806

REACTIONS (15)
  - Lupus-like syndrome [Unknown]
  - Product use issue [Unknown]
  - Weight decreased [Not Recovered/Not Resolved]
  - Pelvic pain [Not Recovered/Not Resolved]
  - Butterfly rash [Unknown]
  - Drug ineffective [Unknown]
  - Breast calcifications [Unknown]
  - Tumour marker increased [Not Recovered/Not Resolved]
  - Hyperplasia [Unknown]
  - Alopecia [Not Recovered/Not Resolved]
  - Arthralgia [Unknown]
  - C-reactive protein abnormal [Recovering/Resolving]
  - Bronchitis [Recovered/Resolved]
  - Joint lock [Unknown]
  - Pruritus [Unknown]

NARRATIVE: CASE EVENT DATE: 2018
